FAERS Safety Report 5236583-1 (Version None)
Quarter: 2007Q1

REPORT INFORMATION
  Report Type: 
  Country: None (occurrence: None)
  Receive Date: 20070208
  Receipt Date: 20070124
  Transmission Date: 20070707
  Serious: Yes (Life-Threatening, Hospitalization)
  Sender: FDA-Public Use
  Company Number: 2007MP000037

PATIENT
  Age: 49 Year
  Sex: Female
  Weight: 56.8 kg

DRUGS (11)
  1. GLIADEL [Suspect]
     Indication: METASTASES TO CENTRAL NERVOUS SYSTEM
     Dosage: X1; ICER
     Dates: start: 20061101
  2. TYLENOL [Concomitant]
  3. GABAPENTIN [Concomitant]
  4. ESZOPICLONE [Concomitant]
  5. METHADONE HCL [Concomitant]
  6. PAXIL [Concomitant]
  7. SENOKOT [Concomitant]
  8. TOLTERODINE [Concomitant]
  9. LINEZOLID [Concomitant]
  10. MEROPENEM [Concomitant]
  11. HERCEPTIN [Concomitant]

REACTIONS (12)
  - BACTERIAL INFECTION [None]
  - BRAIN ABSCESS [None]
  - ERYTHEMA [None]
  - EXTRADURAL ABSCESS [None]
  - HAEMOGLOBIN DECREASED [None]
  - INTRACRANIAL HYPOTENSION [None]
  - PLATELET COUNT INCREASED [None]
  - POST PROCEDURAL COMPLICATION [None]
  - POSTOPERATIVE WOUND INFECTION [None]
  - STAPHYLOCOCCAL INFECTION [None]
  - SUBDURAL EMPYEMA [None]
  - WOUND DEHISCENCE [None]
